FAERS Safety Report 5937981-0 (Version None)
Quarter: 2008Q4

REPORT INFORMATION
  Report Type: 
  Country: None (occurrence: None)
  Receive Date: 20081031
  Receipt Date: 20081020
  Transmission Date: 20090506
  Serious: Yes (Other)
  Sender: FDA-Public Use
  Company Number: US-PFIZER INC-2008073734

PATIENT
  Sex: Male

DRUGS (2)
  1. GEODON [Suspect]
  2. LYRICA [Suspect]

REACTIONS (4)
  - BIPOLAR DISORDER [None]
  - FEELING ABNORMAL [None]
  - MANIA [None]
  - PARALYSIS [None]
